FAERS Safety Report 20741439 (Version 1)
Quarter: 2022Q2

REPORT INFORMATION
  Report Type: Spontaneous
  Country: US (occurrence: US)
  Receive Date: 20220422
  Receipt Date: 20220422
  Transmission Date: 20220721
  Serious: No
  Sender: FDA-Public Use
  Company Number: US-009507513-2204USA006813

PATIENT
  Age: 22 Year
  Sex: Male

DRUGS (5)
  1. CANCIDAS [Suspect]
     Active Substance: CASPOFUNGIN ACETATE
     Indication: Pneumonia fungal
  2. NOXAFIL [Suspect]
     Active Substance: POSACONAZOLE
     Indication: Pneumonia fungal
     Route: 048
  3. OLOROFIM [Concomitant]
     Active Substance: OLOROFIM
     Indication: Pneumonia fungal
  4. AMPHOTERICIN B [Concomitant]
     Active Substance: AMPHOTERICIN B
     Indication: Pneumonia fungal
  5. MILTEFOSINE [Concomitant]
     Active Substance: MILTEFOSINE
     Indication: Pneumonia fungal

REACTIONS (1)
  - Product use in unapproved indication [Unknown]
